FAERS Safety Report 24817597 (Version 2)
Quarter: 2025Q1

REPORT INFORMATION
  Report Type: Spontaneous
  Country: CN (occurrence: CN)
  Receive Date: 20250108
  Receipt Date: 20250108
  Transmission Date: 20250409
  Serious: Yes (Other)
  Sender: Kenvue
  Company Number: CN-KENVUE-20250100040

PATIENT

DRUGS (8)
  1. CHILDRENS MOTRIN [Suspect]
     Active Substance: IBUPROFEN
     Indication: Plasma cell myeloma
     Dosage: 20 MILLILITER, DAY 1
     Route: 048
     Dates: start: 20241108
  2. CHILDRENS MOTRIN [Suspect]
     Active Substance: IBUPROFEN
     Dosage: 20 MILLILITER, DAY 2
     Route: 048
     Dates: start: 20241109
  3. DARATUMUMAB [Suspect]
     Active Substance: DARATUMUMAB
     Indication: Plasma cell myeloma
     Route: 041
     Dates: start: 20241108
  4. DARATUMUMAB [Suspect]
     Active Substance: DARATUMUMAB
     Route: 041
     Dates: start: 20241109
  5. DEXAMETHASONE [Suspect]
     Active Substance: DEXAMETHASONE
     Indication: Plasma cell myeloma
     Route: 065
     Dates: start: 20241108
  6. DEXAMETHASONE [Suspect]
     Active Substance: DEXAMETHASONE
     Route: 065
     Dates: start: 20241109
  7. DIPHENHYDRAMINE [Suspect]
     Active Substance: DIPHENHYDRAMINE
     Indication: Plasma cell myeloma
     Route: 030
     Dates: start: 20241108
  8. DIPHENHYDRAMINE [Suspect]
     Active Substance: DIPHENHYDRAMINE
     Route: 030
     Dates: start: 20241109

REACTIONS (2)
  - White blood cell count decreased [Recovering/Resolving]
  - Off label use [Unknown]

NARRATIVE: CASE EVENT DATE: 20241108
